FAERS Safety Report 6465300-2 (Version None)
Quarter: 2009Q4

REPORT INFORMATION
  Report Type: 
  Country: None (occurrence: None)
  Receive Date: 20091201
  Receipt Date: 20091117
  Transmission Date: 20100525
  Serious: Yes (Hospitalization, Disabling, Other)
  Sender: FDA-Public Use
  Company Number: GB-MYLANLABS-2009S1019945

PATIENT
  Age: 50 Year
  Sex: Female
  Weight: 64 kg

DRUGS (13)
  1. TRAZODONE HCL [Suspect]
     Indication: DEPRESSION
     Dates: start: 20060913
  2. TRAZODONE HCL [Suspect]
     Dates: start: 20061020, end: 20061104
  3. TRAZODONE HCL [Suspect]
     Dates: start: 20060830
  4. BENDROFLUAZIDE [Concomitant]
     Indication: DRUG USE FOR UNKNOWN INDICATION
  5. CO-CODAMOL [Concomitant]
     Indication: DRUG USE FOR UNKNOWN INDICATION
  6. FLUOXETINE [Concomitant]
     Indication: DRUG USE FOR UNKNOWN INDICATION
  7. IPRATROPIUM [Concomitant]
     Indication: DRUG USE FOR UNKNOWN INDICATION
  8. LANSOPRAZOLE [Concomitant]
     Indication: DRUG USE FOR UNKNOWN INDICATION
  9. MONTELUKAST SODIUM [Concomitant]
     Indication: DRUG USE FOR UNKNOWN INDICATION
  10. NUELIN SA [Concomitant]
     Indication: DRUG USE FOR UNKNOWN INDICATION
  11. ALBUTEROL [Concomitant]
     Indication: DRUG USE FOR UNKNOWN INDICATION
  12. SYMBICORT [Concomitant]
     Indication: DRUG USE FOR UNKNOWN INDICATION
  13. ZUMENON [Concomitant]
     Indication: DRUG USE FOR UNKNOWN INDICATION

REACTIONS (2)
  - HEPATITIS [None]
  - JAUNDICE [None]
